FAERS Safety Report 7233205-5 (Version None)
Quarter: 2011Q1

REPORT INFORMATION
  Report Type: 
  Country: None (occurrence: None)
  Receive Date: 20110119
  Receipt Date: 20110114
  Transmission Date: 20110831
  Serious: Yes (Hospitalization)
  Sender: FDA-Public Use
  Company Number: A0906659A

PATIENT
  Age: 37 Year
  Sex: Male
  Weight: 73.6 kg

DRUGS (14)
  1. VELCADE [Suspect]
     Indication: MULTIPLE MYELOMA
     Dosage: 1.3MGM2 CYCLIC
     Route: 042
     Dates: start: 20100427
  2. FLUCONAZOLE [Concomitant]
  3. ZOFRAN [Concomitant]
  4. CARAFATE [Concomitant]
  5. COMPAZINE [Concomitant]
  6. ROCEPHIN [Concomitant]
  7. DILAUDID [Concomitant]
  8. CIPROFLOXACIN [Concomitant]
  9. MELPHALAN [Suspect]
     Indication: MULTIPLE MYELOMA
     Dosage: 100MGM2 CYCLIC
     Route: 042
     Dates: start: 20100426
  10. ACYCLOVIR [Concomitant]
  11. ATIVAN [Concomitant]
  12. DOXYCYCLINE [Concomitant]
  13. PRILOSEC [Concomitant]
  14. GROWTH FACTOR [Concomitant]

REACTIONS (1)
  - FEBRILE NEUTROPENIA [None]
